FAERS Safety Report 16307246 (Version 2)
Quarter: 2019Q2

REPORT INFORMATION
  Report Type: Report from Study
  Country: US (occurrence: US)
  Receive Date: 20190514
  Receipt Date: 20190516
  Transmission Date: 20190711
  Serious: Yes (Other)
  Sender: FDA-Public Use
  Company Number: US-ASTELLAS-2019US000999

PATIENT
  Age: 72 Year
  Sex: Male

DRUGS (2)
  1. ENZALUTAMIDE [Suspect]
     Active Substance: ENZALUTAMIDE
     Route: 048
     Dates: start: 20180920
  2. ENZALUTAMIDE [Suspect]
     Active Substance: ENZALUTAMIDE
     Indication: PROSTATE CANCER
     Route: 048
     Dates: start: 201808

REACTIONS (8)
  - Dementia [Unknown]
  - Constipation [Unknown]
  - Peripheral swelling [Unknown]
  - Pain in extremity [Unknown]
  - Abdominal pain [Unknown]
  - Diarrhoea [Unknown]
  - Underdose [Unknown]
  - Gastric disorder [Unknown]

NARRATIVE: CASE EVENT DATE: 201808
